FAERS Safety Report 4899849-0 (Version None)
Quarter: 2006Q1

REPORT INFORMATION
  Report Type: 
  Country: None (occurrence: None)
  Receive Date: 20060120
  Receipt Date: 20041213
  Transmission Date: 20060701
  Serious: Yes (Other)
  Sender: FDA-Public Use
  Company Number: 389298

PATIENT
  Age: 18 Year
  Sex: Female

DRUGS (2)
  1. VESANOID [Suspect]
     Indication: DRUG USE FOR UNKNOWN INDICATION
     Dates: start: 20041208, end: 20041210
  2. VORICONAZOLE [Suspect]
     Indication: DRUG USE FOR UNKNOWN INDICATION
     Dates: start: 20041206

REACTIONS (2)
  - DRUG INTERACTION [None]
  - RETINOIC ACID SYNDROME [None]
